FAERS Safety Report 6663789-7 (Version None)
Quarter: 2010Q1

REPORT INFORMATION
  Report Type: 
  Country: None (occurrence: None)
  Receive Date: 20100325
  Receipt Date: 20091103
  Transmission Date: 20100710
  Serious: No
  Sender: FDA-Public Use
  Company Number: 2009-00720

PATIENT
  Age: 62 Year
  Sex: Male
  Weight: 68.0396 kg

DRUGS (3)
  1. COLD REMEDY ORAL MIST [Suspect]
     Dosage: QD - 1 DOSE
     Dates: start: 20091028, end: 20091028
  2. COLD REMEDY RAPID MELTS WITH VITAMIN C [Suspect]
     Dosage: QID - 1 DAY
     Dates: start: 20091029, end: 20091030
  3. LEVOXYL [Concomitant]

REACTIONS (1)
  - AGEUSIA [None]
